FAERS Safety Report 4860543-3 (Version None)
Quarter: 2005Q4

REPORT INFORMATION
  Report Type: 
  Country: None (occurrence: None)
  Receive Date: 20051216
  Receipt Date: 20051202
  Transmission Date: 20060501
  Serious: Yes (Hospitalization, Other)
  Sender: FDA-Public Use
  Company Number: USA0508105192

PATIENT
  Age: 54 Year
  Sex: Female
  Weight: 95.7 kg

DRUGS (2)
  1. CYMBALTA [Suspect]
     Indication: DEPRESSION
     Dosage: SEE IMAGE, ORAL
     Route: 048
     Dates: start: 20050201
  2. CYMBALTA [Suspect]
     Indication: DEPRESSION
     Dosage: SEE IMAGE, ORAL
     Route: 048
     Dates: start: 20050701

REACTIONS (23)
  - AMMONIA INCREASED [None]
  - ANTINUCLEAR ANTIBODY INCREASED [None]
  - ARTHRALGIA [None]
  - AUTOIMMUNE HEPATITIS [None]
  - DEPRESSED LEVEL OF CONSCIOUSNESS [None]
  - FATIGUE [None]
  - HAEMOGLOBIN DECREASED [None]
  - HEPATITIS A ANTIBODY POSITIVE [None]
  - HYPOTENSION [None]
  - INTENTIONAL DRUG MISUSE [None]
  - INTENTIONAL OVERDOSE [None]
  - JEJUNAL ULCER PERFORATION [None]
  - LETHARGY [None]
  - MELAENA [None]
  - MENTAL STATUS CHANGES [None]
  - MYALGIA [None]
  - NIGHT SWEATS [None]
  - OVERDOSE [None]
  - PANCREATITIS [None]
  - PYREXIA [None]
  - SELF-MEDICATION [None]
  - TREATMENT NONCOMPLIANCE [None]
  - TREMOR [None]
